FAERS Safety Report 8511183-6 (Version None)
Quarter: 2012Q2

REPORT INFORMATION
  Report Type: 
  Country: None (occurrence: None)
  Receive Date: 20120629
  Receipt Date: 20120614
  Transmission Date: 20120825
  Serious: Yes (Hospitalization)
  Sender: FDA-Public Use
  Company Number: 2012SP032612

PATIENT
  Age: 74 Year
  Sex: Male

DRUGS (1)
  1. ONCOTICE [Suspect]
     Indication: BLADDER NEOPLASM

REACTIONS (5)
  - ASCITES [None]
  - GRANULOMA [None]
  - HEPATIC CIRRHOSIS [None]
  - MALAISE [None]
  - LYMPHADENOPATHY [None]
